FAERS Safety Report 6712091-3 (Version None)
Quarter: 2010Q2

REPORT INFORMATION
  Report Type: 
  Country: None (occurrence: None)
  Receive Date: 20100505
  Receipt Date: 20100421
  Transmission Date: 20101027
  Serious: Yes (Other)
  Sender: FDA-Public Use
  Company Number: JP-GENENTECH-296121

PATIENT
  Sex: Female

DRUGS (4)
  1. LUCENTIS [Suspect]
     Indication: MACULAR DEGENERATION
     Dosage: 0.05 ML, UNKNOWN
     Route: 031
     Dates: start: 20090415
  2. TRIAMCINOLONE ACETONIDE [Concomitant]
     Indication: DRUG USE FOR UNKNOWN INDICATION
     Dosage: UNK
     Route: 065
     Dates: start: 20080101
  3. ANTIBIOTICS (NOT SPECIFIED) [Concomitant]
     Indication: PROPHYLAXIS
     Dosage: UNK
     Route: 065
  4. LEVOFLOXACIN [Concomitant]
     Indication: DRUG USE FOR UNKNOWN INDICATION
     Dosage: UNK
     Dates: start: 20090401, end: 20090401

REACTIONS (2)
  - ANTERIOR CHAMBER INFLAMMATION [None]
  - PSEUDOENDOPHTHALMITIS [None]
